FAERS Safety Report 4517141-0 (Version None)
Quarter: 2004Q4

REPORT INFORMATION
  Report Type: 
  Country: None (occurrence: None)
  Receive Date: 20041005
  Receipt Date: 20040525
  Transmission Date: 20050328
  Serious: Yes (Other)
  Sender: FDA-Public Use
  Company Number: PHEH2004US05838

PATIENT
  Sex: Female

DRUGS (6)
  1. ESTALIS COMBIPATCH (ESTRADIOL, NORETHISTERONE ACETATE)MATRIX TRANS THE [Suspect]
     Indication: HORMONE REPLACEMENT THERAPY
     Dosage: TRANSDERMAL
     Route: 062
  2. PREMPRO [Suspect]
  3. PREMARIN [Suspect]
  4. PROVERA [Suspect]
  5. ESTROGENS (NO INGEDIENTS/SUBSTANCES) [Suspect]
  6. MEDROXYPROGESTERONE ACETATE [Suspect]

REACTIONS (2)
  - BREAST CANCER [None]
  - BREAST OPERATION [None]
